FAERS Safety Report 5283165-1 (Version None)
Quarter: 2007Q1

REPORT INFORMATION
  Report Type: 
  Country: None (occurrence: None)
  Receive Date: 20070327
  Receipt Date: 20070316
  Transmission Date: 20070707
  Serious: Yes (Death)
  Sender: FDA-Public Use
  Company Number: 2007-00580

PATIENT
  Age: 64 Year
  Sex: Female

DRUGS (14)
  1. VELCADE [Suspect]
     Indication: MULTIPLE MYELOMA
     Dosage: 1.00 MG/M2
     Dates: start: 20070219, end: 20070226
  2. DEXAMETHASONE [Concomitant]
  3. ZOFRAN [Concomitant]
  4. TAZOCIN (PIPERACILLOIN SODIUM, TAZOBACTAM SODIUM) [Concomitant]
  5. BAKTAR (SULFAMETHOXAZOLE, TRIMETHOPRIM) [Concomitant]
  6. RABEPRAZOLE SODIUM [Concomitant]
  7. PROMAC /JPN/ (POLAPREZINC) [Concomitant]
  8. BIOFERIN (STREPTOCOCCUS FAECALIS, LACTOBACILLUS ACIDOPHILUS, BACILLUS [Concomitant]
  9. MAGNESIUM OXIDE (MAGNESIUM OXIDE) [Concomitant]
  10. PENTAZOCINE LACTATE [Concomitant]
  11. SILECE (FLUNITRAZEPAM) [Concomitant]
  12. PRIMPERAN TAB [Concomitant]
  13. FUNGIZONE [Concomitant]
  14. ITRACONAZOLE [Concomitant]

REACTIONS (3)
  - PNEUMONIA ASPIRATION [None]
  - RESPIRATORY FAILURE [None]
  - SEPTIC SHOCK [None]
